FAERS Safety Report 19111263 (Version 1)
Quarter: 2021Q2

REPORT INFORMATION
  Report Type: Spontaneous
  Country: US (occurrence: US)
  Receive Date: 20210408
  Receipt Date: 20210408
  Transmission Date: 20210717
  Serious: Yes (Other)
  Sender: FDA-Public Use
  Company Number: None

PATIENT
  Sex: Female

DRUGS (8)
  1. OMEPRAZOLE. [Concomitant]
     Active Substance: OMEPRAZOLE
  2. UPTRAVI [Concomitant]
     Active Substance: SELEXIPAG
  3. XANAX [Concomitant]
     Active Substance: ALPRAZOLAM
  4. ADCIRCA [Concomitant]
     Active Substance: TADALAFIL
  5. INVEGA [Concomitant]
     Active Substance: PALIPERIDONE
  6. TADALAFIL. [Concomitant]
     Active Substance: TADALAFIL
  7. ONDANSETRON [Concomitant]
     Active Substance: ONDANSETRON
  8. LETAIRIS [Suspect]
     Active Substance: AMBRISENTAN
     Indication: PULMONARY ARTERIAL HYPERTENSION

REACTIONS (4)
  - Erythema [None]
  - Diarrhoea [None]
  - Headache [None]
  - Feeling hot [None]
